FAERS Safety Report 7256189-2 (Version None)
Quarter: 2011Q1

REPORT INFORMATION
  Report Type: 
  Country: None (occurrence: None)
  Receive Date: 20110129
  Receipt Date: 20100511
  Transmission Date: 20110831
  Serious: No
  Sender: FDA-Public Use
  Company Number: US-ABBOTT-10P-163-0643499-00

PATIENT
  Sex: Female

DRUGS (3)
  1. LINIOPRIL [Concomitant]
     Indication: PRODUCT USED FOR UNKNOWN INDICATION
  2. HUMIRA [Suspect]
     Indication: RHEUMATOID ARTHRITIS
     Dosage: SWITCHED FROM PRE-FILLED SYRINGE ABOUT A YEAR AGO
     Dates: start: 20050101, end: 20090101
  3. HUMIRA [Suspect]
     Dates: start: 20090101

REACTIONS (1)
  - JOINT SWELLING [None]
